FAERS Safety Report 7658567-6 (Version None)
Quarter: 2011Q3

REPORT INFORMATION
  Report Type: 
  Country: None (occurrence: None)
  Receive Date: 20110804
  Receipt Date: 20110804
  Transmission Date: 20111222
  Serious: Yes (Hospitalization, Disabling, Other)
  Sender: FDA-Public Use
  Company Number: None

PATIENT
  Sex: Female
  Weight: 79.8331 kg

DRUGS (1)
  1. PANTOPRAZOLE SODIUM [Suspect]
     Indication: GASTROOESOPHAGEAL REFLUX DISEASE
     Dosage: 40 MG 1 QD ORAL 2-3 YEARS
     Route: 048

REACTIONS (20)
  - VITAMIN D DEFICIENCY [None]
  - DYSPEPSIA [None]
  - ABDOMINAL PAIN UPPER [None]
  - ASTHENIA [None]
  - SKIN ULCER [None]
  - FATIGUE [None]
  - SCAR [None]
  - GASTRIC ULCER [None]
  - CHEST PAIN [None]
  - OEDEMA PERIPHERAL [None]
  - DIZZINESS [None]
  - MUSCLE SPASMS [None]
  - ARTHRALGIA [None]
  - SWELLING FACE [None]
  - VISION BLURRED [None]
  - CONFUSIONAL STATE [None]
  - DIARRHOEA [None]
  - VOMITING [None]
  - PRURITUS [None]
  - ARRHYTHMIA [None]
